FAERS Safety Report 4947629-X (Version None)
Quarter: 2006Q1

REPORT INFORMATION
  Report Type: 
  Country: None (occurrence: None)
  Receive Date: 20060314
  Receipt Date: 20060309
  Transmission Date: 20060701
  Serious: Yes (Hospitalization)
  Sender: FDA-Public Use
  Company Number: 220797

PATIENT
  Age: 51 Year
  Sex: Female
  Weight: 65.3 kg

DRUGS (4)
  1. ERLOTINIB (ERLOTINIB)TABLET, 100MG [Suspect]
     Indication: NEOPLASM MALIGNANT
     Dosage: 100 MG, ORAL
     Route: 048
     Dates: end: 20051128
  2. BEVACIZUMAB (BEVACIZUMAB) PWDR + SOLVENT, INFUSION SOLN, 100MG [Suspect]
     Indication: NEOPLASM MALIGNANT
     Dosage: 10 MG/KG,
     Dates: end: 20051205
  3. OXYCONTIN [Concomitant]
  4. OXYCODONE (OXYCODONE) [Concomitant]

REACTIONS (8)
  - EJECTION FRACTION DECREASED [None]
  - HAEMOGLOBIN DECREASED [None]
  - HYPOTENSION [None]
  - MITRAL VALVE INCOMPETENCE [None]
  - RESPIRATORY DISTRESS [None]
  - SEPSIS [None]
  - TREATMENT NONCOMPLIANCE [None]
  - VENTRICULAR DYSFUNCTION [None]
